FAERS Safety Report 16902999 (Version 1)
Quarter: 2019Q4

REPORT INFORMATION
  Report Type: Spontaneous
  Country: US (occurrence: US)
  Receive Date: 20190816
  Receipt Date: 20190816
  Transmission Date: 20200122
  Serious: Yes (Other)
  Sender: FDA-Public Use
  Company Number: None

PATIENT
  Age: 53 Year
  Sex: Male
  Weight: 81.65 kg

DRUGS (1)
  1. ZOLPIDEM [Suspect]
     Active Substance: ZOLPIDEM TARTRATE
     Indication: INSOMNIA
     Route: 048
     Dates: start: 20190714, end: 20190723

REACTIONS (8)
  - Abnormal behaviour [None]
  - Somnambulism [None]
  - Amnesia [None]
  - Altered pitch perception [None]
  - Sedation complication [None]
  - Aggression [None]
  - Road traffic accident [None]
  - Gait disturbance [None]

NARRATIVE: CASE EVENT DATE: 20190724
